FAERS Safety Report 16952730 (Version 1)
Quarter: 2019Q4

REPORT INFORMATION
  Report Type: Spontaneous
  Country: US (occurrence: US)
  Receive Date: 20190904
  Receipt Date: 20190904
  Transmission Date: 20200122
  Serious: Yes (Disabling, Other)
  Sender: FDA-Public Use
  Company Number: None

PATIENT
  Age: 74 Year
  Sex: Female
  Weight: 99.79 kg

DRUGS (14)
  1. OFLOXACIN. [Suspect]
     Active Substance: OFLOXACIN
     Indication: CATARACT OPERATION
     Dosage: ?          QUANTITY:0.3 % PERCENT;?
     Route: 047
     Dates: start: 20190610, end: 20190621
  2. SIMVASTATIN. [Concomitant]
     Active Substance: SIMVASTATIN
  3. CIPROFLOXACIN. [Suspect]
     Active Substance: CIPROFLOXACIN
  4. METROPRICOL [Concomitant]
  5. VIT B [Concomitant]
     Active Substance: VITAMIN B
  6. HYLASTIN [Concomitant]
  7. FUROSIMIDE [Concomitant]
     Active Substance: FUROSEMIDE
  8. MSM [Concomitant]
     Active Substance: DIMETHYL SULFONE
  9. TUMERIC [Concomitant]
     Active Substance: HERBALS\TURMERIC
  10. VITAMIN E [Concomitant]
     Active Substance: .ALPHA.-TOCOPHEROL
  11. FISH OIL [Concomitant]
     Active Substance: FISH OIL
  12. VITAMIN C [Concomitant]
     Active Substance: ASCORBIC ACID
  13. MILK THISTLE [Concomitant]
     Active Substance: DIETARY SUPPLEMENT\HERBALS\MILK THISTLE
  14. HYLARONIC AICID [Concomitant]

REACTIONS (1)
  - Tendon rupture [None]

NARRATIVE: CASE EVENT DATE: 20190730
